FAERS Safety Report 8177259-0 (Version None)
Quarter: 2012Q1

REPORT INFORMATION
  Report Type: 
  Country: None (occurrence: None)
  Receive Date: 20120301
  Receipt Date: 20120220
  Transmission Date: 20120608
  Serious: Yes (Hospitalization)
  Sender: FDA-Public Use
  Company Number: PT-BRISTOL-MYERS SQUIBB COMPANY-16420424

PATIENT
  Sex: Male

DRUGS (1)
  1. MITOMYCIN [Suspect]
     Indication: BLADDER PAPILLOMA
     Dosage: MITOMYCIN-C INJECTION
     Route: 043

REACTIONS (2)
  - ALOPECIA [None]
  - BLADDER PERFORATION [None]
